FAERS Safety Report 22597570 (Version 1)
Quarter: 2023Q2

REPORT INFORMATION
  Report Type: Spontaneous
  Country: US (occurrence: US)
  Receive Date: 20230614
  Receipt Date: 20230614
  Transmission Date: 20230721
  Serious: No
  Sender: FDA-Public Use
  Company Number: US-ELI_LILLY_AND_COMPANY-US202306007543

PATIENT
  Sex: Male

DRUGS (2)
  1. MOUNJARO [Suspect]
     Active Substance: TIRZEPATIDE
     Indication: Glycosylated haemoglobin increased
     Dosage: 2.5 MG, UNKNOWN
     Route: 058
     Dates: start: 202305
  2. MOUNJARO [Suspect]
     Active Substance: TIRZEPATIDE
     Indication: Glycosylated haemoglobin increased
     Dosage: 5 MG, UNKNOWN
     Route: 058

REACTIONS (1)
  - Constipation [Recovered/Resolved]
